FAERS Safety Report 24051136 (Version 1)
Quarter: 2024Q3

REPORT INFORMATION
  Report Type: Spontaneous
  Country: BR (occurrence: BR)
  Receive Date: 20240704
  Receipt Date: 20240704
  Transmission Date: 20241016
  Serious: Yes (Hospitalization, Other)
  Sender: BRISTOL MYERS SQUIBB
  Company Number: BR-BRISTOL-MYERS SQUIBB COMPANY-2024-106569

PATIENT
  Age: 70 Year
  Sex: Male

DRUGS (1)
  1. REVLIMID [Suspect]
     Active Substance: LENALIDOMIDE
     Indication: Plasma cell myeloma
     Dosage: DOSE : 5MG;     FREQ : 21 DAYS ON AND 7 DAYS OFF (28DAYS CYCLE)

REACTIONS (2)
  - Aspiration [Unknown]
  - Dysphagia [Unknown]

NARRATIVE: CASE EVENT DATE: 20240601
